FAERS Safety Report 6425018-9 (Version None)
Quarter: 2009Q4

REPORT INFORMATION
  Report Type: 
  Country: None (occurrence: None)
  Receive Date: 20091103
  Receipt Date: 20091026
  Transmission Date: 20100525
  Serious: Yes (Hospitalization)
  Sender: FDA-Public Use
  Company Number: GXKR2009GB11747

PATIENT
  Age: 40 Year
  Sex: Female

DRUGS (6)
  1. CITALOPRAM HYDROBROMIDE [Suspect]
     Indication: DEPRESSED MOOD
     Dosage: 40 MG, UNK
     Route: 048
  2. OMEPRAZOLE [Suspect]
     Indication: COLITIS ULCERATIVE
     Dosage: 20 MG, UNK
     Route: 065
  3. AMITRIPTYLINE [Suspect]
     Indication: MOOD ALTERED
     Route: 065
  4. CLOZARIL [Suspect]
     Indication: SCHIZOPHRENIA
     Dosage: 350 MG/DAY
     Route: 048
     Dates: start: 20000805, end: 20090914
  5. PRIADEL [Suspect]
     Indication: AFFECTIVE DISORDER
     Dosage: 800 MG, UNK
     Route: 048
  6. BALSALAZIDE [Concomitant]

REACTIONS (9)
  - DIARRHOEA [None]
  - DRUG DOSE OMISSION [None]
  - INTESTINAL OBSTRUCTION [None]
  - INTESTINAL RESECTION [None]
  - NEUTROPHIL COUNT INCREASED [None]
  - PLATELET COUNT INCREASED [None]
  - PULMONARY THROMBOSIS [None]
  - VOMITING [None]
  - WHITE BLOOD CELL COUNT INCREASED [None]
